FAERS Safety Report 14661488 (Version 9)
Quarter: 2020Q2

REPORT INFORMATION
  Report Type: Report from Study
  Country: US (occurrence: US)
  Receive Date: 20180320
  Receipt Date: 20200625
  Transmission Date: 20200713
  Serious: Yes (Hospitalization, Other)
  Sender: FDA-Public Use
  Company Number: US-ACTELION-A-US2016-140782

PATIENT
  Age: 53 Year
  Sex: Male
  Weight: 74.83 kg

DRUGS (26)
  1. CARAFATE [Concomitant]
     Active Substance: SUCRALFATE
     Indication: PAIN
     Dosage: 1 G, QID
     Route: 048
  2. METOPROLOL SUCCINATE. [Concomitant]
     Active Substance: METOPROLOL SUCCINATE
     Dosage: 25 MG, QPM
     Route: 048
  3. VITAMIN D3 [Concomitant]
     Active Substance: CHOLECALCIFEROL
     Dosage: 5000 IU, QD
     Route: 048
  4. PANTOPRAZOLE [Concomitant]
     Active Substance: PANTOPRAZOLE
     Dosage: 40 MG, QD
     Route: 048
  5. FLUOXETINE [Concomitant]
     Active Substance: FLUOXETINE HYDROCHLORIDE
     Dosage: 40 MG, QD
     Route: 048
  6. FLUTICASONE. [Concomitant]
     Active Substance: FLUTICASONE
     Dosage: 2 SPRAY, QD
     Route: 045
  7. POTASSIUM CHLORIDE. [Concomitant]
     Active Substance: POTASSIUM CHLORIDE
     Dosage: 20 MEQ, QD
     Route: 048
  8. VELETRI [Suspect]
     Active Substance: EPOPROSTENOL
     Dosage: 85 NG/KG PER MIN
     Route: 042
  9. ALENDRONATE [Concomitant]
     Active Substance: ALENDRONATE SODIUM
     Dosage: 70 MG, Q1WEEK
     Route: 048
  10. AZELASTINE. [Concomitant]
     Active Substance: AZELASTINE HYDROCHLORIDE
     Dosage: 1 SPRAY, QD
     Route: 045
  11. COMBIVENT RESPIMAT [Concomitant]
     Active Substance: ALBUTEROL SULFATE\IPRATROPIUM BROMIDE
     Dosage: 1 PUFF, Q4HRS
  12. VELETRI [Suspect]
     Active Substance: EPOPROSTENOL
     Indication: PULMONARY HYPERTENSION
     Dosage: 85 NG/KG, PER MIN
     Route: 042
     Dates: start: 20100823
  13. WARFARIN [Concomitant]
     Active Substance: WARFARIN
  14. CYCLOBENZAPRINE. [Concomitant]
     Active Substance: CYCLOBENZAPRINE
     Indication: MUSCLE SPASMS
     Dosage: 10 MG, PRN
     Route: 048
  15. RANITIDINE. [Concomitant]
     Active Substance: RANITIDINE
     Dosage: 300 MG, QPM
     Route: 048
  16. SILENOR [Concomitant]
     Active Substance: DOXEPIN HYDROCHLORIDE
     Dosage: 6 MG, QD
     Route: 048
  17. ELIQUIS [Concomitant]
     Active Substance: APIXABAN
     Dosage: 5 MG, BID
     Route: 048
  18. DEXILANT [Concomitant]
     Active Substance: DEXLANSOPRAZOLE
     Dosage: 60 MG, QD
     Route: 048
  19. TRAMADOL. [Concomitant]
     Active Substance: TRAMADOL
     Dosage: 50 MG, PRN
     Route: 048
  20. VELETRI [Suspect]
     Active Substance: EPOPROSTENOL
     Dosage: 87 NG/KG, PER MIN
     Route: 042
  21. COLESTIPOL [Concomitant]
     Active Substance: COLESTIPOL
     Dosage: 1 G, BID
     Route: 048
  22. METOCLOPRAMIDE. [Concomitant]
     Active Substance: METOCLOPRAMIDE
     Dosage: 10 MG, BID
     Route: 048
  23. VITAMIN B12 [Concomitant]
     Active Substance: CYANOCOBALAMIN
     Dosage: 100 MCG, QD
     Route: 048
  24. ATORVASTATIN [Concomitant]
     Active Substance: ATORVASTATIN
     Dosage: 40 MG, QD
     Route: 048
  25. XANAX [Concomitant]
     Active Substance: ALPRAZOLAM
     Dosage: 0.5 MG, QPM
     Route: 048
  26. ZOFRAN [Concomitant]
     Active Substance: ONDANSETRON HYDROCHLORIDE
     Indication: NAUSEA
     Dosage: 4 MG, PRN
     Route: 048

REACTIONS (32)
  - Device related infection [Unknown]
  - Biopsy lymph gland [Unknown]
  - Dyspnoea [Unknown]
  - Catheter site pruritus [Unknown]
  - Catheter site pain [Unknown]
  - Pain [Unknown]
  - Weight decreased [Unknown]
  - Chills [Unknown]
  - Pyrexia [Unknown]
  - Device leakage [Unknown]
  - Diarrhoea [Unknown]
  - Erythema [Unknown]
  - Muscle spasms [Unknown]
  - Pneumonia [Unknown]
  - Back pain [Unknown]
  - Arthralgia [Unknown]
  - Catheter management [Unknown]
  - Nausea [Unknown]
  - Pain in jaw [Unknown]
  - Dyspnoea exertional [Not Recovered/Not Resolved]
  - Chest pain [Unknown]
  - Device malfunction [Unknown]
  - Headache [Unknown]
  - Flushing [Unknown]
  - Device breakage [Unknown]
  - Heart rate increased [Unknown]
  - Hiatus hernia [Unknown]
  - Chronic respiratory failure [Unknown]
  - Central venous catheterisation [Unknown]
  - Coagulopathy [Unknown]
  - Rash [Unknown]
  - Muscle strain [Recovered/Resolved]

NARRATIVE: CASE EVENT DATE: 2018
